APPROVED DRUG PRODUCT: TIAZAC
Active Ingredient: DILTIAZEM HYDROCHLORIDE
Strength: 180MG
Dosage Form/Route: CAPSULE, EXTENDED RELEASE;ORAL
Application: N020401 | Product #002 | TE Code: AB4
Applicant: BAUSCH HEALTH US LLC
Approved: Sep 11, 1995 | RLD: Yes | RS: No | Type: RX